FAERS Safety Report 12591423 (Version 2)
Quarter: 2016Q3

REPORT INFORMATION
  Report Type: Spontaneous
  Country: US (occurrence: US)
  Receive Date: 20160726
  Receipt Date: 20160727
  Transmission Date: 20161109
  Serious: No
  Sender: FDA-Public Use
  Company Number: US-UNITED THERAPEUTICS-UNT-2016-006330

PATIENT
  Sex: Female

DRUGS (1)
  1. REMODULIN [Suspect]
     Active Substance: TREPROSTINIL
     Indication: PULMONARY ARTERIAL HYPERTENSION
     Dosage: 0.04 ?G/KG, CONTINUING
     Route: 058
     Dates: start: 20140304

REACTIONS (6)
  - Dizziness [Unknown]
  - Incorrect dosage administered [Unknown]
  - Headache [Unknown]
  - Pain in jaw [Unknown]
  - Bone pain [Unknown]
  - Overdose [Unknown]

NARRATIVE: CASE EVENT DATE: 20160416
